FAERS Safety Report 22644000 (Version 1)
Quarter: 2023Q2

REPORT INFORMATION
  Report Type: Report from Study
  Country: EG (occurrence: EG)
  Receive Date: 20230627
  Receipt Date: 20230627
  Transmission Date: 20230722
  Serious: Yes (Other)
  Sender: FDA-Public Use
  Company Number: EG-002147023-NVSC2023EG139101

PATIENT
  Age: 13 Year
  Sex: Male

DRUGS (1)
  1. OMNITROPE [Suspect]
     Active Substance: SOMATROPIN
     Indication: Growth hormone deficiency
     Dosage: 1 MG, QD, 30 IU BY INSULIN SYRINGE (30 IU BY INSULIN SYRINGE (USING 100 IU INSULIN SYRINGE)
     Route: 058
     Dates: start: 20230605

REACTIONS (6)
  - Tachycardia [Recovered/Resolved]
  - Chills [Not Recovered/Not Resolved]
  - Dizziness [Recovered/Resolved]
  - Nausea [Recovered/Resolved]
  - Abdominal pain upper [Not Recovered/Not Resolved]
  - Drug administered in wrong device [Not Recovered/Not Resolved]

NARRATIVE: CASE EVENT DATE: 20230621
